FAERS Safety Report 23221276 (Version 2)
Quarter: 2024Q1

REPORT INFORMATION
  Report Type: Report from Study
  Country: US (occurrence: US)
  Receive Date: 20231123
  Receipt Date: 20240322
  Transmission Date: 20240410
  Serious: Yes (Other)
  Sender: FDA-Public Use
  Company Number: US-002147023-NVSC2023US245951

PATIENT
  Sex: Female

DRUGS (1)
  1. MAYZENT [Suspect]
     Active Substance: SIPONIMOD
     Indication: Multiple sclerosis
     Dosage: UNK
     Route: 065

REACTIONS (2)
  - Abortion spontaneous [Unknown]
  - Maternal exposure timing unspecified [Unknown]
